FAERS Safety Report 12077040 (Version 2)
Quarter: 2016Q2

REPORT INFORMATION
  Report Type: Spontaneous
  Country: US (occurrence: US)
  Receive Date: 20160215
  Receipt Date: 20160426
  Transmission Date: 20160815
  Serious: Yes (Other)
  Sender: FDA-Public Use
  Company Number: US-ASTELLAS-2016US005169

PATIENT
  Age: 67 Year
  Sex: Female

DRUGS (3)
  1. CAPECITABINE. [Concomitant]
     Active Substance: CAPECITABINE
     Indication: BREAST CANCER
  2. CAPECITABINE. [Concomitant]
     Active Substance: CAPECITABINE
     Indication: MALIGNANT NIPPLE NEOPLASM
     Dosage: 500 MG, OTHER (4 TABLETS IN THE MORNING AND 3 TABLETS IN THE EVENING)
     Route: 048
     Dates: start: 20151120
  3. TARCEVA [Suspect]
     Active Substance: ERLOTINIB HYDROCHLORIDE
     Indication: PANCREATIC CARCINOMA
     Route: 048
     Dates: start: 20160128

REACTIONS (5)
  - Decreased appetite [Not Recovered/Not Resolved]
  - Neuropathy peripheral [Not Recovered/Not Resolved]
  - Chills [Recovering/Resolving]
  - Constipation [Not Recovered/Not Resolved]
  - Cough [Not Recovered/Not Resolved]

NARRATIVE: CASE EVENT DATE: 20160201
